FAERS Safety Report 9271634 (Version 1)
Quarter: 2013Q2

REPORT INFORMATION
  Report Type: Spontaneous
  Country: US (occurrence: US)
  Receive Date: 20130506
  Receipt Date: 20130506
  Transmission Date: 20140414
  Serious: No
  Sender: FDA-Public Use
  Company Number: US-PFIZER INC-2013135990

PATIENT
  Sex: Male
  Weight: 72.56 kg

DRUGS (1)
  1. TIKOSYN [Suspect]
     Indication: CARDIAC DISORDER
     Dosage: 375 UG, 1X/DAY

REACTIONS (2)
  - Heart rate increased [Unknown]
  - Tremor [Unknown]
